FAERS Safety Report 9776192 (Version 1)
Quarter: 2013Q4

REPORT INFORMATION
  Report Type: Spontaneous
  Country: FR (occurrence: FR)
  Receive Date: 20131220
  Receipt Date: 20131220
  Transmission Date: 20140711
  Serious: Yes (Death)
  Sender: FDA-Public Use
  Company Number: FR-MYLANLABS-2013S1027875

PATIENT
  Age: 48 Year
  Sex: Male

DRUGS (1)
  1. TRAMADOL [Suspect]
     Indication: OVERDOSE
     Dosage: ^MASSIVE DOSE^
     Route: 048

REACTIONS (12)
  - Overdose [Fatal]
  - Suicidal ideation [Fatal]
  - Somnolence [Unknown]
  - Dizziness [Unknown]
  - Altered state of consciousness [Unknown]
  - Coma [Unknown]
  - Convulsion [Unknown]
  - Confusional state [Unknown]
  - Hallucination [Unknown]
  - Nausea [Unknown]
  - Vomiting [Unknown]
  - Constipation [Unknown]
